FAERS Safety Report 20425892 (Version 1)
Quarter: 2022Q1

REPORT INFORMATION
  Report Type: Report from Study
  Country: US (occurrence: US)
  Receive Date: 20220204
  Receipt Date: 20220204
  Transmission Date: 20220423
  Serious: No
  Sender: FDA-Public Use
  Company Number: US-EXELIXIS-CABO-21040282

PATIENT
  Sex: Male

DRUGS (23)
  1. CABOMETYX [Suspect]
     Active Substance: CABOZANTINIB S-MALATE
     Indication: Prostate cancer
     Dosage: 40 MG
  2. ACETAZOLAMIDE [Concomitant]
     Active Substance: ACETAZOLAMIDE
  3. ASPIRIN [Concomitant]
     Active Substance: ASPIRIN
  4. ATORVASTATIN [Concomitant]
     Active Substance: ATORVASTATIN
  5. BUPROPION [Concomitant]
     Active Substance: BUPROPION
  6. CALCIUM [Concomitant]
     Active Substance: CALCIUM
  7. MAGNESIUM [Concomitant]
     Active Substance: MAGNESIUM
  8. MELATONIN [Concomitant]
     Active Substance: MELATONIN
  9. MIRTAZAPINE [Concomitant]
     Active Substance: MIRTAZAPINE
  10. PANTOPRAZOLE [Concomitant]
     Active Substance: PANTOPRAZOLE
  11. KCL [Concomitant]
     Active Substance: POTASSIUM CHLORIDE
  12. PROCHLORPERAZINE [Concomitant]
     Active Substance: PROCHLORPERAZINE
  13. TAMSULOSIN [Concomitant]
     Active Substance: TAMSULOSIN
  14. VITAMIN C [Concomitant]
     Active Substance: ASCORBIC ACID
  15. VITAMIN D3 [Concomitant]
     Active Substance: CHOLECALCIFEROL
  16. VIVOTIF [Concomitant]
     Active Substance: SALMONELLA TYPHI TY21A LIVE ANTIGEN
  17. DEXAMETHASONE [Concomitant]
     Active Substance: DEXAMETHASONE
  18. DICLOFENAC SODIUM [Concomitant]
     Active Substance: DICLOFENAC SODIUM
  19. FLUTICASONE [Concomitant]
     Active Substance: FLUTICASONE
  20. LASIX [Concomitant]
     Active Substance: FUROSEMIDE
  21. GABAPENTIN [Concomitant]
     Active Substance: GABAPENTIN
  22. LEVOTHYROXINE [Concomitant]
     Active Substance: LEVOTHYROXINE
  23. LUPRON [Concomitant]
     Active Substance: LEUPROLIDE ACETATE

REACTIONS (6)
  - Apathy [Recovered/Resolved]
  - Depression [Recovered/Resolved]
  - Nausea [Recovered/Resolved]
  - Decreased appetite [Recovered/Resolved]
  - Asthenia [Recovered/Resolved]
  - Off label use [Unknown]
